FAERS Safety Report 9675840 (Version 1)
Quarter: 2013Q4

REPORT INFORMATION
  Report Type: Spontaneous
  Country: US (occurrence: US)
  Receive Date: 20131107
  Receipt Date: 20131107
  Transmission Date: 20140711
  Serious: Yes (Death)
  Sender: FDA-Public Use
  Company Number: US-GLAXOSMITHKLINE-A1048564A

PATIENT
  Age: 72 Year
  Sex: Male

DRUGS (5)
  1. VOTRIENT [Suspect]
     Indication: RENAL CANCER
     Dosage: 800MG PER DAY
     Route: 048
     Dates: start: 20090710
  2. WARFARIN SODIUM [Concomitant]
  3. HYDROCODONE + ACETAMINOPHEN [Concomitant]
  4. GLIPIZIDE [Concomitant]
  5. ZOFRAN [Concomitant]

REACTIONS (1)
  - Death [Fatal]
